FAERS Safety Report 17795845 (Version 1)
Quarter: 2020Q2

REPORT INFORMATION
  Report Type: Spontaneous
  Country: IT (occurrence: IT)
  Receive Date: 20200516
  Receipt Date: 20200516
  Transmission Date: 20200714
  Serious: Yes (Hospitalization, Other)
  Sender: FDA-Public Use
  Company Number: IT-ACCORD-182184

PATIENT
  Age: 34 Year
  Sex: Female

DRUGS (5)
  1. ALFACALCIDOL [Suspect]
     Active Substance: ALFACALCIDOL
     Indication: RHEUMATOID ARTHRITIS
     Dosage: 1 MCG / DAY
     Route: 048
  2. METHOTREXATE. [Suspect]
     Active Substance: METHOTREXATE
     Indication: RHEUMATOID ARTHRITIS
     Dosage: 2.5 MG 1 TABLET AT 8 HOURS, 1 TABLET AT 12 HOURS AND 2 TABLETS AT 20 HOURS ON SATURDAYS,
     Route: 048
  3. FOLIC ACID. [Suspect]
     Active Substance: FOLIC ACID
     Indication: RHEUMATOID ARTHRITIS
     Dosage: 5 MG 2 TABLETS ON TUESDAY AND THURSDAY
     Route: 048
  4. IRON [Suspect]
     Active Substance: IRON
     Indication: RHEUMATOID ARTHRITIS
     Dosage: 2 TABLETS ON MONDAY AND 2 TABLETS ON FRIDAY
     Route: 048
  5. METHYLPREDNISOLONE. [Suspect]
     Active Substance: METHYLPREDNISOLONE
     Indication: RHEUMATOID ARTHRITIS
     Dosage: 16 MG 1/4 OF TABLET / DAY
     Route: 048

REACTIONS (12)
  - Overdose [Unknown]
  - Skin lesion [Unknown]
  - Leukopenia [Unknown]
  - Pharyngeal erythema [Unknown]
  - Superinfection [Unknown]
  - Tonsillitis [Recovered/Resolved]
  - Inappropriate schedule of product administration [Unknown]
  - Angular cheilitis [Unknown]
  - Oral infection [Unknown]
  - Lip ulceration [Unknown]
  - Gingival bleeding [Unknown]
  - Mucosal inflammation [Unknown]
